FAERS Safety Report 15515787 (Version 1)
Quarter: 2018Q4

REPORT INFORMATION
  Report Type: Report from Study
  Country: IT (occurrence: IT)
  Receive Date: 20181017
  Receipt Date: 20181017
  Transmission Date: 20190205
  Serious: Yes (Other)
  Sender: FDA-Public Use
  Company Number: IT-AUROBINDO-AUR-APL-2018-005195

PATIENT
  Age: 18 Year
  Sex: Male

DRUGS (24)
  1. METHOTREXATE. [Suspect]
     Active Substance: METHOTREXATE
     Indication: PRIMARY MEDIASTINAL LARGE B-CELL LYMPHOMA
     Dosage: 3 G/M2, UNK
     Route: 065
  2. ETOPOSIDE. [Suspect]
     Active Substance: ETOPOSIDE
     Indication: PRIMARY MEDIASTINAL LARGE B-CELL LYMPHOMA
     Dosage: 100 MG/M2, FOR 2 HOURS ON DAY 4 AND 5 (2 COURSES OF COURSE AA AND 2 COURSES OF COURSE CC)
     Route: 042
  3. DEXAMETHASONE. [Suspect]
     Active Substance: DEXAMETHASONE
     Indication: PRIMARY MEDIASTINAL LARGE B-CELL LYMPHOMA
     Dosage: 20 MG/M2, IN 2 COURSES OF COURSE CC ON DAY 0 TO 5
     Route: 065
  4. CARBOPLATIN. [Suspect]
     Active Substance: CARBOPLATIN
     Indication: PRIMARY MEDIASTINAL LARGE B-CELL LYMPHOMA
     Dosage: UNK
     Route: 065
  5. CARBOPLATIN. [Suspect]
     Active Substance: CARBOPLATIN
     Dosage: RECEIVED TWO CYCLES OF R-ICE (RITUXIMAB, IFOSFAMIDE, CARBOPLATIN, ETOPOSIDE) ()
     Route: 065
  6. RITUXIMAB. [Suspect]
     Active Substance: RITUXIMAB
     Dosage: 375 MG/M2, ON DAY 0: 2 COURSES OF COURSE AA, 3 COURSES OF COURSE BB AND 2 COURSES OF COURSE CC
     Route: 065
  7. CYTARABINE. [Suspect]
     Active Substance: CYTARABINE
     Indication: PRIMARY MEDIASTINAL LARGE B-CELL LYMPHOMA
     Dosage: 3 G/M2, IN TWO DOSES (DOSES ARE 12 HOURS APART) FOR 3 HOURS ON DAY 1 AND 2: 2 COURSES OF COURSE CC
     Route: 042
  8. METHOTREXATE. [Suspect]
     Active Substance: METHOTREXATE
     Dosage: 3 G/M2, 10% OF DOSE GIVEN IN 0.5 HOURS, 90% OF DOSE OVER 23.5 HOURS) ON DAY 1 (2 COURSES).
     Route: 042
  9. PREDNISOLONE. [Suspect]
     Active Substance: PREDNISOLONE
     Indication: PRIMARY MEDIASTINAL LARGE B-CELL LYMPHOMA
     Dosage: PRIMARY MEDIASTINAL LARGE B-CELL LYMPHOMA ()
     Route: 037
  10. IFOSFAMIDE. [Suspect]
     Active Substance: IFOSFAMIDE
     Indication: PRIMARY MEDIASTINAL LARGE B-CELL LYMPHOMA
     Dosage: 800 MG/M2, FOR 1 HOUR ON DAY 1 TO 5: COURSE AA (2 COURSES).
     Route: 042
  11. LEVOLEUCOVORIN                     /06682101/ [Suspect]
     Active Substance: LEVOLEUCOVORIN
     Indication: PRIMARY MEDIASTINAL LARGE B-CELL LYMPHOMA
     Dosage: 15 MG/M2, AT 42 HOURS AFTER METHOTREXATE
     Route: 042
  12. DEXAMETHASONE. [Suspect]
     Active Substance: DEXAMETHASONE
     Dosage: 5 MG/M2, 5 MG/M2 AND 10 MG/M2 ON DAY 1 AND 2 OF PREPHASE THERAPY
     Route: 065
  13. LEVOLEUCOVORIN                     /06682101/ [Suspect]
     Active Substance: LEVOLEUCOVORIN
     Dosage: 7.5 MG/M2, AT 48 AND 54 HOURS AFTER METHOTREXATE ADMINISTRATION
     Route: 042
  14. DOXORUBICIN [Suspect]
     Active Substance: DOXORUBICIN
     Dosage: 30 MILLIGRAM/SQ. METER
     Route: 042
  15. RITUXIMAB. [Suspect]
     Active Substance: RITUXIMAB
     Indication: PRIMARY MEDIASTINAL LARGE B-CELL LYMPHOMA
     Dosage: 375 MG/M2, UNK
     Route: 065
  16. VINCRISTINE [Suspect]
     Active Substance: VINCRISTINE
     Indication: PRIMARY MEDIASTINAL LARGE B-CELL LYMPHOMA
     Dosage: 1.5 MG/M2, DRUG USE FOR UNKNOWN INDICATION
     Route: 042
  17. CYCLOPHOSPHAMIDE. [Suspect]
     Active Substance: CYCLOPHOSPHAMIDE
     Indication: PRIMARY MEDIASTINAL LARGE B-CELL LYMPHOMA
     Dosage: 200 MG/M2, FOR 1 HOUR ON DAY 1 TO 5: 3 COURSES OF COURSE BB
     Route: 042
  18. VINDESINE [Suspect]
     Active Substance: VINDESINE
     Indication: PRIMARY MEDIASTINAL LARGE B-CELL LYMPHOMA
     Dosage: 3 MG/M2, ON DAY 1 (2 COURSES OF COURSE CC).
     Route: 042
  19. RITUXIMAB. [Suspect]
     Active Substance: RITUXIMAB
     Dosage: SIX DOSES AT 375 MG/M2
     Route: 065
  20. CYTARABINE. [Suspect]
     Active Substance: CYTARABINE
     Dosage: 150 MG/M2, IN TWO DOSES (DOSES ARE 12 HOURS APART) FOR 1 HOUR ON DAY 4 AND 5: 2 COURSES OF COURSE AA
     Route: 042
  21. DEXAMETHASONE. [Suspect]
     Active Substance: DEXAMETHASONE
     Dosage: 10 MG/M2, 10 MG/M2 IN 2 COURSES OF COURSE AA AND 3 COURSES OF COURSE BB ON 1 TO 5
     Route: 065
  22. DOXORUBICIN [Suspect]
     Active Substance: DOXORUBICIN
     Indication: PRIMARY MEDIASTINAL LARGE B-CELL LYMPHOMA
     Dosage: 30 MG/M2, DAILY FOR 4 HOURS ON DAY 4 AND 5
     Route: 042
  23. METHOTREXATE. [Suspect]
     Active Substance: METHOTREXATE
     Dosage: METHOTREXATE, CYTARABINE AND PREDNISOLONE (12MG+30MG+10MG) ON DAY 1: IN PREPHASE THERAPY, 2 COURS...
     Route: 037
  24. METHOTREXATE. [Suspect]
     Active Substance: METHOTREXATE
     Dosage: HIGHER DOSE (3G/M2) ; CYCLICAL
     Route: 037

REACTIONS (2)
  - Restrictive pulmonary disease [Unknown]
  - Dyspnoea [Unknown]
